FAERS Safety Report 13362819 (Version 1)
Quarter: 2017Q1

REPORT INFORMATION
  Report Type: Spontaneous
  Country: US (occurrence: US)
  Receive Date: 20170322
  Receipt Date: 20170322
  Transmission Date: 20170429
  Serious: No
  Sender: FDA-Public Use
  Company Number: None

PATIENT
  Age: 59 Year
  Sex: Male

DRUGS (1)
  1. ENBREL [Suspect]
     Active Substance: ETANERCEPT
     Indication: PSORIASIS

REACTIONS (6)
  - Ear disorder [None]
  - Skin plaque [None]
  - Anorectal disorder [None]
  - Pain in extremity [None]
  - Psoriasis [None]
  - Penile plaque [None]

NARRATIVE: CASE EVENT DATE: 20170322
